FAERS Safety Report 4411098-9 (Version None)
Quarter: 2004Q3

REPORT INFORMATION
  Report Type: 
  Country: None (occurrence: None)
  Receive Date: 20040729
  Receipt Date: 20040722
  Transmission Date: 20050211
  Serious: Yes (Hospitalization)
  Sender: FDA-Public Use
  Company Number: AT-BRISTOL-MYERS SQUIBB COMPANY-12650420

PATIENT
  Age: 77 Year
  Sex: Male

DRUGS (2)
  1. CETUXIMAB [Suspect]
     Indication: COLORECTAL CANCER
     Dosage: PT HAD REC'D FIVE INFUSIONS PRIOR TO EVENT. STUDY DRUG D/C'D ON 19-JUL-04.
     Route: 041
     Dates: start: 20040615, end: 20040713
  2. IRINOTECAN [Suspect]
     Indication: COLORECTAL CANCER
     Dosage: PT HAD REC'D TWO INFUSIONS PRIOR TO EVENT. STUDY DRUG D/C'D ON 19-JUL-04.
     Route: 042
     Dates: start: 20040615, end: 20040706

REACTIONS (3)
  - DIARRHOEA [None]
  - HAEMODYNAMIC INSTABILITY [None]
  - RENAL FAILURE ACUTE [None]
